FAERS Safety Report 10077050 (Version 1)
Quarter: 2014Q2

REPORT INFORMATION
  Report Type: Spontaneous
  Country: US (occurrence: US)
  Receive Date: 20140414
  Receipt Date: 20140414
  Transmission Date: 20141212
  Serious: Yes (Other)
  Sender: FDA-Public Use
  Company Number: US-ABBVIE-14K-163-1225436-00

PATIENT
  Sex: Female

DRUGS (4)
  1. SYNTHROID [Suspect]
     Indication: AUTOIMMUNE THYROIDITIS
     Dates: start: 1997, end: 1999
  2. SYNTHROID [Suspect]
     Indication: GOITRE
     Dosage: DOSE GRADUALLY WEANED UNTIL DISCONTINUED
     Dates: start: 1999, end: 2000
  3. SYNTHROID [Suspect]
     Indication: HYPOTHYROIDISM
  4. XANAX [Concomitant]
     Indication: PRODUCT USED FOR UNKNOWN INDICATION

REACTIONS (7)
  - Intracranial aneurysm [Recovered/Resolved]
  - Arrhythmia [Not Recovered/Not Resolved]
  - Metabolic acidosis [Recovered/Resolved]
  - Anaemia [Not Recovered/Not Resolved]
  - Epistaxis [Recovered/Resolved]
  - Asthenia [Not Recovered/Not Resolved]
  - Overdose [Unknown]
